FAERS Safety Report 8473483-8 (Version None)
Quarter: 2012Q2

REPORT INFORMATION
  Report Type: 
  Country: None (occurrence: None)
  Receive Date: 20120622
  Receipt Date: 20120622
  Transmission Date: 20120825
  Serious: Yes (Other)
  Sender: FDA-Public Use
  Company Number: None

PATIENT
  Sex: Female

DRUGS (1)
  1. ORSYTHIA [Suspect]
     Dosage: ONE TABLET DAILY PO
     Route: 048
     Dates: start: 20120416, end: 20120614

REACTIONS (2)
  - WEIGHT INCREASED [None]
  - ANXIETY [None]
